FAERS Safety Report 10549110 (Version 1)
Quarter: 2014Q4

REPORT INFORMATION
  Report Type: Spontaneous
  Country: US (occurrence: None)
  Receive Date: 20141015
  Receipt Date: 20141015
  Transmission Date: 20150529
  Serious: Yes (Hospitalization)
  Sender: FDA-Public Use
  Company Number: 2014US00391

PATIENT
  Age: 72 Year
  Sex: Female
  Weight: 81 kg

DRUGS (7)
  1. METOPROLOL TARTRATE (METOPROLOL TARTRATE) [Concomitant]
  2. ICLUSIG [Suspect]
     Active Substance: PONATINIB
     Indication: ACUTE LYMPHOCYTIC LEUKAEMIA
     Route: 048
     Dates: start: 20140530
  3. BACTRIM [Concomitant]
     Active Substance: SULFAMETHOXAZOLE\TRIMETHOPRIM
  4. LIDODERM [Concomitant]
     Active Substance: LIDOCAINE
  5. VALACYCLOVIR (VALACYCLOVIR HYDROCHLORIDE) [Concomitant]
  6. PRILOSEC (OMEPRAZOLE) [Concomitant]
     Active Substance: OMEPRAZOLE MAGNESIUM
  7. ENTOCORT (BUDESONIDE) [Concomitant]

REACTIONS (2)
  - Pancreatitis [None]
  - Drug hypersensitivity [None]
